FAERS Safety Report 9319488 (Version 13)
Quarter: 2016Q1

REPORT INFORMATION
  Report Type: Spontaneous
  Country: US (occurrence: US)
  Receive Date: 20130530
  Receipt Date: 20160128
  Transmission Date: 20160526
  Serious: Yes (Hospitalization, Other)
  Sender: FDA-Public Use
  Company Number: US-GLAXOSMITHKLINE-A0990786A

PATIENT
  Age: 74 Year
  Sex: Male

DRUGS (15)
  1. FLOLAN [Suspect]
     Active Substance: EPOPROSTENOL SODIUM
     Dosage: 26 NG/KG/MIN CONTINUOUSLY
     Dates: start: 20140807
  2. FLOLAN [Suspect]
     Active Substance: EPOPROSTENOL SODIUM
     Dosage: UNK UNK, U
     Dates: start: 2001
  3. FLOLAN [Suspect]
     Active Substance: EPOPROSTENOL SODIUM
     Dosage: 22 DF, UNK
     Route: 042
     Dates: start: 20140807
  4. BUMEX [Suspect]
     Active Substance: BUMETANIDE
     Indication: DIURETIC THERAPY
  5. DILTIAZEM [Concomitant]
     Active Substance: DILTIAZEM
  6. WARFARIN [Concomitant]
     Active Substance: WARFARIN
  7. FLOLAN [Suspect]
     Active Substance: EPOPROSTENOL SODIUM
     Indication: PULMONARY HYPERTENSION
     Dosage: UNK
     Dates: start: 20061023
  8. FLOLAN [Suspect]
     Active Substance: EPOPROSTENOL SODIUM
     Dosage: UNK
     Dates: start: 20061023
  9. FLOLAN [Suspect]
     Active Substance: EPOPROSTENOL SODIUM
     Dosage: 26 NG/KG/MIN CONTINUOUSLY
  10. FLOLAN [Suspect]
     Active Substance: EPOPROSTENOL SODIUM
     Indication: COR PULMONALE CHRONIC
     Dosage: 19 NG/KG/MIN, CONCENTRATION 30,000 NG/ML, PUMP RATE 88 ML/DAY, VIAL STRENGTH 1.5 MG2 NG/KG/MIN,[...]
     Route: 042
     Dates: start: 20061023
  11. FLOLAN [Suspect]
     Active Substance: EPOPROSTENOL SODIUM
     Dosage: UNK
     Dates: start: 20061023
  12. FLOLAN [Suspect]
     Active Substance: EPOPROSTENOL SODIUM
     Dosage: UNK
     Dates: start: 20061023
  13. REVATIO [Concomitant]
     Active Substance: SILDENAFIL CITRATE
  14. FLOLAN [Suspect]
     Active Substance: EPOPROSTENOL SODIUM
     Dosage: 24 NG/KG/MIN CONTINUOUS
     Route: 042
  15. FLOLAN [Suspect]
     Active Substance: EPOPROSTENOL SODIUM
     Dosage: 30 NG/KG/MIN CONTINUOUSLY
     Route: 042

REACTIONS (30)
  - Intestinal haemorrhage [Recovered/Resolved]
  - Injection site infection [Recovered/Resolved]
  - Coagulopathy [Unknown]
  - Fatigue [Recovered/Resolved]
  - Device issue [Unknown]
  - Angiopathy [Unknown]
  - Transfusion [Unknown]
  - Bacterial infection [Unknown]
  - Flushing [Unknown]
  - Nervousness [Unknown]
  - Anaemia [Unknown]
  - Catheter site discharge [Unknown]
  - Gastric infection [Unknown]
  - Gastrointestinal infection [Unknown]
  - Drug intolerance [Unknown]
  - Gastrointestinal disorder [Unknown]
  - Diverticulitis [Unknown]
  - Device dislocation [Unknown]
  - Feeling abnormal [Unknown]
  - Pseudomonas infection [Unknown]
  - Blood pressure abnormal [Recovered/Resolved]
  - Dehydration [Recovered/Resolved]
  - Malaise [Recovered/Resolved]
  - Post procedural haemorrhage [Recovered/Resolved]
  - Asthenia [Recovered/Resolved]
  - Catheter site erythema [Unknown]
  - Pain in jaw [Not Recovered/Not Resolved]
  - Pallor [Unknown]
  - Central venous catheterisation [Unknown]
  - Large intestinal haemorrhage [Unknown]

NARRATIVE: CASE EVENT DATE: 20120816
